FAERS Safety Report 24365138 (Version 4)
Quarter: 2024Q4

REPORT INFORMATION
  Report Type: Spontaneous
  Country: US (occurrence: US)
  Receive Date: 20240926
  Receipt Date: 20241018
  Transmission Date: 20250114
  Serious: No
  Sender: SANOFI AVENTIS
  Company Number: US-SANOFI-02228954

PATIENT
  Age: 81 Year
  Sex: Male

DRUGS (3)
  1. DUPIXENT [Suspect]
     Active Substance: DUPILUMAB
     Indication: Pemphigoid
     Dosage: UNK
     Route: 058
     Dates: start: 202205, end: 202304
  2. PREDNISONE [Concomitant]
     Active Substance: PREDNISONE
     Indication: Pemphigoid
     Dosage: 10 MG, QD
  3. PREDNISONE [Concomitant]
     Active Substance: PREDNISONE
     Dosage: 7.5 MG, QD

REACTIONS (1)
  - No adverse event [Unknown]
